FAERS Safety Report 11242304 (Version 1)
Quarter: 2015Q3

REPORT INFORMATION
  Report Type: Spontaneous
  Country: ES (occurrence: ES)
  Receive Date: 20150707
  Receipt Date: 20150707
  Transmission Date: 20151125
  Serious: Yes (Other)
  Sender: FDA-Public Use
  Company Number: ES-009507513-1507ESP001253

PATIENT
  Age: 33 Year
  Sex: Female
  Weight: 54 kg

DRUGS (1)
  1. NUVARING [Suspect]
     Active Substance: ETHINYL ESTRADIOL\ETONOGESTREL
     Indication: CONTRACEPTION
     Dosage: UNK
     Route: 065

REACTIONS (4)
  - Blindness [Recovered/Resolved]
  - Palpitations [Recovered/Resolved]
  - Dizziness [Recovered/Resolved]
  - Feeling abnormal [Recovered/Resolved]

NARRATIVE: CASE EVENT DATE: 2014
